FAERS Safety Report 20152312 (Version 1)
Quarter: 2021Q4

REPORT INFORMATION
  Report Type: Spontaneous
  Country: JP (occurrence: JP)
  Receive Date: 20211206
  Receipt Date: 20211206
  Transmission Date: 20220303
  Serious: Yes (Hospitalization, Other)
  Sender: FDA-Public Use
  Company Number: JP-PFIZER INC-202101483990

PATIENT
  Age: 93 Year
  Sex: Female
  Weight: 43.1 kg

DRUGS (9)
  1. CELECOXIB [Suspect]
     Active Substance: CELECOXIB
     Dosage: 100 MG, 2X/DAY
     Route: 048
     Dates: start: 20190924
  2. CELECOXIB [Suspect]
     Active Substance: CELECOXIB
  3. AMLODIPINE [Concomitant]
     Active Substance: AMLODIPINE BESYLATE
     Dosage: 2.5 MG, 1X/DAY
     Route: 048
  4. ELDECALCITOL [Concomitant]
     Active Substance: ELDECALCITOL
     Dosage: 0.75 UG, 1X/DAY
     Route: 048
  5. MOSAPRIDE CITRATE [Concomitant]
     Active Substance: MOSAPRIDE CITRATE
     Dosage: 5 MG, 2X/DAY
     Route: 048
  6. TRIMEBUTINE MALEATE [Concomitant]
     Active Substance: TRIMEBUTINE MALEATE
     Dosage: 100 MG, 2X/DAY
     Route: 048
  7. SIMVASTATIN [Concomitant]
     Active Substance: SIMVASTATIN
     Dosage: 10 MG, 1X/DAY
     Route: 048
  8. VONOPRAZAN FUMARATE [Concomitant]
     Active Substance: VONOPRAZAN FUMARATE
     Dosage: 20 MG, 1X/DAY
     Route: 048
  9. FEXOFENADINE [Concomitant]
     Active Substance: FEXOFENADINE HYDROCHLORIDE
     Dosage: 60 MG, 1X/DAY
     Route: 048

REACTIONS (3)
  - Thrombocytopenic purpura [Recovered/Resolved]
  - Renal impairment [Unknown]
  - Helicobacter infection [Unknown]

NARRATIVE: CASE EVENT DATE: 20200630
